FAERS Safety Report 8588122 (Version 2)
Quarter: 2012Q4

REPORT INFORMATION
  Report Type: 
  Country: US (occurrence: US)
  Receive Date: 20120531
  Receipt Date: 20121030
  Transmission Date: 20130627
  Serious: Yes (Hospitalization)
  Sender: FDA-Public Use
  Company Number: US-BAYER-2012-052568

PATIENT
  Age: 21 Year
  Sex: Female
  Weight: 74.83 kg

DRUGS (7)
  1. OCELLA [Suspect]
     Indication: CONTRACEPTION
     Dosage: UNK
     Dates: start: 20100104, end: 20101103
  2. OCELLA [Suspect]
     Indication: IRREGULAR MENSTRUAL CYCLE
  3. IBUPROFEN [Concomitant]
  4. CLARITHROMYCIN [Concomitant]
  5. OXYCODONE [Concomitant]
  6. OXYCODONE/APAP [Concomitant]
     Dosage: 5-325 mg tablet
  7. DOCUSATE SODIUM [Concomitant]
     Dosage: 100 mg, UNK

REACTIONS (10)
  - Gallbladder disorder [None]
  - Cholecystitis acute [None]
  - Pulmonary embolism [None]
  - Abdominal pain [None]
  - Abdominal pain upper [None]
  - Pain [None]
  - Injury [None]
  - General physical health deterioration [None]
  - Anxiety [None]
  - Emotional distress [None]
